FAERS Safety Report 17693255 (Version 4)
Quarter: 2020Q3

REPORT INFORMATION
  Report Type: Report from Study
  Country: IN (occurrence: IN)
  Receive Date: 20200422
  Receipt Date: 20200903
  Transmission Date: 20201102
  Serious: Yes (Hospitalization)
  Sender: FDA-Public Use
  Company Number: IN-ROCHE-2536381

PATIENT
  Age: 58 Year
  Sex: Female
  Weight: 61.8 kg

DRUGS (8)
  1. RITUXIMAB. [Suspect]
     Active Substance: RITUXIMAB
     Dosage: 622 MG IN 200 ML NORMAL SALINE SOLUTION?DATE OF MOST RECENT DOSE OF RITUXIMAB PRIOR TO SAE (ACUTE GA
     Route: 042
     Dates: start: 20200211, end: 20200211
  2. RITUXIMAB. [Suspect]
     Active Substance: RITUXIMAB
     Dosage: 630 MG IN 200 ML NORMAL SALINE SOLUTION
     Route: 042
     Dates: start: 20200204
  3. FUROSEMIDE. [Concomitant]
     Active Substance: FUROSEMIDE
     Dates: start: 20200125, end: 20200125
  4. METOPROLOL. [Concomitant]
     Active Substance: METOPROLOL
     Dates: start: 20200125, end: 20200125
  5. RITUXIMAB. [Suspect]
     Active Substance: RITUXIMAB
     Indication: GRANULOMATOSIS WITH POLYANGIITIS
     Dosage: 650 MG IN 250 ML NORMAL SALINE SOLUTION?DATE OF LAST RITUXIMAB DOSE OF 622 MG ADMINISTERED PRIOR TO
     Route: 042
     Dates: start: 20200121
  6. RITUXIMAB. [Suspect]
     Active Substance: RITUXIMAB
     Dosage: 635 MG IN 200 ML NORMAL SALINE SOLUTION
     Route: 042
     Dates: start: 20200128
  7. FUROSEMIDE. [Concomitant]
     Active Substance: FUROSEMIDE
     Dates: start: 20200125, end: 20200125
  8. FUROSEMIDE. [Concomitant]
     Active Substance: FUROSEMIDE
     Dates: start: 20200125, end: 20200125

REACTIONS (5)
  - Device related sepsis [Recovered/Resolved]
  - Fluid overload [Recovered/Resolved]
  - Arteriovenous fistula operation [Not Recovered/Not Resolved]
  - Gastroenteritis [Recovered/Resolved]
  - Anaemia [Recovered/Resolved]

NARRATIVE: CASE EVENT DATE: 20200126
